FAERS Safety Report 5332137-7 (Version None)
Quarter: 2007Q2

REPORT INFORMATION
  Report Type: 
  Country: None (occurrence: None)
  Receive Date: 20070523
  Receipt Date: 20070514
  Transmission Date: 20071010
  Serious: Yes (Hospitalization)
  Sender: FDA-Public Use
  Company Number: GB-ROCHE-497467

PATIENT
  Age: 58 Year
  Sex: Female

DRUGS (3)
  1. CAPECITABINE [Suspect]
     Indication: RECTAL CANCER
     Dosage: NO FURTHER INFORMATION PROVIDED
     Route: 048
     Dates: start: 20060312
  2. ELOXATIN [Suspect]
     Indication: RECTAL CANCER
     Dosage: NO FURTHER INFORMATION PROVIDED
     Route: 042
     Dates: start: 20060312
  3. CETUXIMAB [Suspect]
     Indication: RECTAL CANCER
     Dosage: NO FURTHER INFORMATION PROVIDED
     Route: 042
     Dates: start: 20060312

REACTIONS (1)
  - CELLULITIS [None]
